FAERS Safety Report 7832913-2 (Version None)
Quarter: 2011Q4

REPORT INFORMATION
  Report Type: 
  Country: None (occurrence: None)
  Receive Date: 20111024
  Receipt Date: 20111019
  Transmission Date: 20120403
  Serious: Yes (Hospitalization, Other)
  Sender: FDA-Public Use
  Company Number: FR-PFIZER INC-2011251199

PATIENT
  Age: 62 Year
  Sex: Female

DRUGS (8)
  1. BISOPROLOL FUMARATE [Concomitant]
     Dosage: UNK
  2. CEFUROXIME [Concomitant]
     Dosage: UNK
     Route: 048
     Dates: start: 20110527, end: 20110801
  3. INDAPAMIDE [Concomitant]
     Dosage: UNK
  4. INSULIN [Concomitant]
     Dosage: UNK
  5. COVERAM [Concomitant]
     Dosage: UNK
  6. LYRICA [Concomitant]
     Dosage: 50 MG, UNK
  7. ATORVASTATIN CALCIUM [Suspect]
     Indication: HYPERCHOLESTEROLAEMIA
     Dosage: 40 MG, DAILY
     Route: 048
     Dates: end: 20110901
  8. FUSIDIC ACID [Suspect]
     Indication: OSTEITIS
     Dosage: UNK
     Route: 048
     Dates: start: 20110527, end: 20110801

REACTIONS (4)
  - HEPATOCELLULAR INJURY [None]
  - RHABDOMYOLYSIS [None]
  - MYOSITIS [None]
  - RENAL FAILURE [None]
